FAERS Safety Report 8340189-5 (Version None)
Quarter: 2012Q2

REPORT INFORMATION
  Report Type: 
  Country: None (occurrence: None)
  Receive Date: 20120507
  Receipt Date: 20120425
  Transmission Date: 20120825
  Serious: Yes (Other)
  Sender: FDA-Public Use
  Company Number: DE-BRISTOL-MYERS SQUIBB COMPANY-16549941

PATIENT
  Age: 71 Year
  Sex: Female

DRUGS (2)
  1. BARACLUDE [Suspect]
     Dosage: 07NOV2012:ENTECAVIR THERAPY WAS SUPPLEMENTED WITH ADDITIONAL VIREAD
     Dates: start: 20111006
  2. VIREAD [Suspect]
     Dates: start: 20111107

REACTIONS (1)
  - ACUTE HEPATIC FAILURE [None]
